FAERS Safety Report 4300997-4 (Version None)
Quarter: 2004Q1

REPORT INFORMATION
  Report Type: 
  Country: None (occurrence: None)
  Receive Date: 20040219
  Receipt Date: 20040204
  Transmission Date: 20041129
  Serious: Yes (Disabling, Other)
  Sender: FDA-Public Use
  Company Number: 2004-06627

PATIENT
  Age: 36 Year
  Sex: Male
  Weight: 84.8 kg

DRUGS (4)
  1. TENOFOVIR DF [Suspect]
     Indication: HIV INFECTION
     Dosage: 300 MG QD PO
     Route: 048
     Dates: start: 20031119, end: 20040204
  2. LAMIVUDINE [Suspect]
     Indication: HIV INFECTION
     Dosage: 150 MG BID PO
     Route: 048
     Dates: start: 20001127, end: 20040204
  3. EFAVIRENZ [Suspect]
     Indication: HIV INFECTION
     Dosage: 600 MG QD PO
     Route: 048
     Dates: start: 20001127, end: 20040204
  4. CITRACAL [Concomitant]

REACTIONS (3)
  - IMPAIRED WORK ABILITY [None]
  - INSOMNIA [None]
  - RHABDOMYOLYSIS [None]
